FAERS Safety Report 4952841-X (Version None)
Quarter: 2006Q1

REPORT INFORMATION
  Report Type: 
  Country: None (occurrence: None)
  Receive Date: 20060324
  Receipt Date: 20060313
  Transmission Date: 20060701
  Serious: Yes (Hospitalization)
  Sender: FDA-Public Use
  Company Number: FR-JNJFOC-20060303370

PATIENT
  Age: 59 Year
  Sex: Male
  Weight: 73 kg

DRUGS (5)
  1. RISPERDAL [Suspect]
     Route: 048
  2. SEROPRAM [Suspect]
     Route: 048
  3. XENAZINE [Suspect]
     Indication: DRUG USE FOR UNKNOWN INDICATION
     Dosage: 1.5 TABLETS IN 1 DAY
     Route: 048
  4. SERESTA [Suspect]
     Route: 048
  5. TERALITHE [Suspect]
     Route: 048

REACTIONS (1)
  - CARDIOMYOPATHY [None]
